FAERS Safety Report 5583782-5 (Version None)
Quarter: 2008Q1

REPORT INFORMATION
  Report Type: 
  Country: None (occurrence: None)
  Receive Date: 20080108
  Receipt Date: 20071228
  Transmission Date: 20080703
  Serious: Yes (Hospitalization)
  Sender: FDA-Public Use
  Company Number: JP-BRISTOL-MYERS SQUIBB COMPANY-14022552

PATIENT
  Age: 10 Year
  Sex: Female

DRUGS (5)
  1. ENDOXAN [Suspect]
     Indication: ACUTE LYMPHOCYTIC LEUKAEMIA
     Dosage: COMPLETED ON 10JAN07
     Route: 041
     Dates: start: 20040212, end: 20060215
  2. VINCRISTINE SULFATE [Suspect]
     Indication: ACUTE LYMPHOCYTIC LEUKAEMIA
     Route: 042
     Dates: start: 20031120, end: 20060607
  3. PREDONINE [Suspect]
     Indication: ACUTE LYMPHOCYTIC LEUKAEMIA
     Dosage: COMPLETED ON 10JAN07
     Route: 048
     Dates: end: 20070110
  4. BAKTAR [Concomitant]
     Dates: start: 20030327, end: 20070516
  5. LEUKERIN [Concomitant]
     Dates: start: 20031105, end: 20060301

REACTIONS (1)
  - IDIOPATHIC THROMBOCYTOPENIC PURPURA [None]
